FAERS Safety Report 8370485-7 (Version None)
Quarter: 2012Q2

REPORT INFORMATION
  Report Type: 
  Country: None (occurrence: None)
  Receive Date: 20120518
  Receipt Date: 20120514
  Transmission Date: 20120825
  Serious: Yes (Other)
  Sender: FDA-Public Use
  Company Number: PHEH2012US009965

PATIENT
  Sex: Female

DRUGS (17)
  1. LAXATIVES [Concomitant]
     Dosage: UNK UKN, UNK
  2. TAMSULOSIN HYDROCHLORIDE [Concomitant]
     Dosage: 1 DF, AT BEDTIME
     Route: 048
     Dates: start: 20111027
  3. VITAMIN B-12 [Concomitant]
     Dosage: UNK UKN, QD
  4. TYSABRI [Concomitant]
     Dosage: 300 MG/15 ML INFUSION EVERY MONTH
  5. VENLAFAXINE HYDROCHLORIDE [Concomitant]
     Dosage: 1 DF, QD
     Route: 048
  6. CYCLOBENZAPRINE HCL [Concomitant]
     Dosage: 10 MG, TID
     Route: 048
     Dates: start: 20111027
  7. FLOMAX [Concomitant]
     Dosage: 1 DF, DAILY
     Route: 048
  8. VITAMIN D [Concomitant]
     Dosage: UNK UKN, UNK
  9. VICODIN [Concomitant]
     Dosage: 300 MG, QID
  10. ADDERALL XR 10 [Concomitant]
     Dosage: 2 DF, DAILY
     Route: 048
  11. GABAPENTIN [Concomitant]
     Dosage: 14 DF, 3 CAPS MORNING, 3 AT NOON, 4 IN AFTERNOON AND 4 AT BEDTIME
     Route: 048
     Dates: start: 20120227
  12. HYDROCODONE BITARTRATE + ACETAMINOPHEN [Concomitant]
     Dosage: 1 DF, EVERY 4 DAYS AS NEEDED
     Route: 048
     Dates: start: 20101229
  13. ASCORBIC ACID [Concomitant]
     Dosage: UNK UKN, UNK
  14. DIAZEPAM [Concomitant]
     Dosage: 0.5 DF, BID
     Route: 048
  15. TOPAMAX [Concomitant]
     Dosage: 1 DF, BID
     Route: 048
     Dates: start: 20101022
  16. GILENYA [Suspect]
     Indication: MULTIPLE SCLEROSIS
     Dosage: 0.5 MG, QD
     Route: 048
     Dates: start: 20120221
  17. LEVOTHYROXINE SODIUM [Concomitant]
     Dosage: 1 DF, DAILY
     Route: 048

REACTIONS (10)
  - ABDOMINAL PAIN [None]
  - PERIPHERAL COLDNESS [None]
  - FLATULENCE [None]
  - DECREASED APPETITE [None]
  - HALLUCINATION [None]
  - LYMPHADENOPATHY [None]
  - ABDOMINAL DISTENSION [None]
  - WEIGHT INCREASED [None]
  - OEDEMA PERIPHERAL [None]
  - PAIN IN EXTREMITY [None]
